FAERS Safety Report 5085673-5 (Version None)
Quarter: 2006Q3

REPORT INFORMATION
  Report Type: 
  Country: None (occurrence: None)
  Receive Date: 20060822
  Receipt Date: 20060728
  Transmission Date: 20061208
  Serious: Yes (Hospitalization)
  Sender: FDA-Public Use
  Company Number: FR-ROCHE-457332

PATIENT
  Age: 47 Year
  Sex: Female

DRUGS (35)
  1. ZENAPAX [Suspect]
     Route: 042
     Dates: start: 20050313, end: 20050313
  2. ZENAPAX [Suspect]
     Route: 042
     Dates: start: 20050320, end: 20050320
  3. MYCOPHENOLATE MOFETIL [Suspect]
     Route: 048
     Dates: start: 20050317, end: 20050714
  4. MYCOPHENOLATE MOFETIL [Suspect]
     Dosage: ADVERSE EVENT/TOXICITY
     Route: 048
     Dates: start: 20050715, end: 20050715
  5. MYCOPHENOLATE MOFETIL [Suspect]
     Dosage: ADVERSE EVENT/TOXICITY
     Route: 048
     Dates: start: 20050716, end: 20050716
  6. MYCOPHENOLATE MOFETIL [Suspect]
     Dosage: ADVERSE EVENT/TOXICITY
     Route: 048
     Dates: start: 20050717, end: 20050718
  7. MYCOPHENOLATE MOFETIL [Suspect]
     Dosage: ADVERSE EVENT/TOXICITY
     Route: 048
     Dates: start: 20050719, end: 20050802
  8. MYCOPHENOLATE MOFETIL [Suspect]
     Route: 048
     Dates: start: 20050803, end: 20050807
  9. MYCOPHENOLATE MOFETIL [Suspect]
     Route: 048
     Dates: start: 20050808, end: 20050912
  10. MYCOPHENOLATE MOFETIL [Suspect]
     Route: 048
     Dates: start: 20050913, end: 20060315
  11. MYCOPHENOLATE MOFETIL [Suspect]
     Route: 042
     Dates: start: 20050313, end: 20050316
  12. TACROLIMUS [Suspect]
     Dosage: DOSAGE ADJUSTED TO REACH PREDEFINED TARGET LEVEL
     Route: 048
     Dates: start: 20050318, end: 20060315
  13. PREDNISONE [Suspect]
     Dosage: DOSAGE ADJUSTED TO REACH PREDEFINED TARGET LEVEL
     Route: 065
     Dates: start: 20050320, end: 20050714
  14. PREDNISONE [Suspect]
     Dosage: ADVERSE EVENT/TOXICITY
     Route: 065
     Dates: start: 20050715, end: 20050912
  15. PREDNISONE [Suspect]
     Dosage: DOSAGE ADJUSTED TO REACH PREDEFINED TARGET LEVEL
     Route: 065
     Dates: start: 20050913, end: 20060315
  16. METHYLPREDNISOLONE [Suspect]
     Dosage: DOSAGE ADJUSTED TO REACH PREDEFINED TARGET LEVEL
     Route: 065
     Dates: start: 20050313, end: 20050319
  17. ZOVIRAX [Concomitant]
     Dosage: THERAPY STOPPED BETWEEN 18 MARCH 2005 TO 18 JULY 2005
     Dates: start: 20050315, end: 20050807
  18. ZELITREX [Concomitant]
     Dates: start: 20050319, end: 20050610
  19. HEPARIN [Concomitant]
     Indication: THROMBOSIS PROPHYLAXIS
     Dates: start: 20050313, end: 20050405
  20. FRAXIPARINE [Concomitant]
     Indication: THROMBOSIS PROPHYLAXIS
     Dates: start: 20050306, end: 20050427
  21. OMEPRAZOLE [Concomitant]
     Indication: PROPHYLAXIS
     Dosage: THERAPY STOPPED BETWEEN 18 JUL 2005 TO 13 SEP 2005
     Dates: start: 20050313
  22. ASPEGIC 1000 [Concomitant]
     Indication: THROMBOSIS PROPHYLAXIS
     Dosage: THERAPY STOPPED BETWEEN 28 MAY 2005 TO 15 JULY 2005
     Dates: start: 20050428, end: 20050715
  23. ACTRAPID [Concomitant]
     Indication: HYPERGLYCAEMIA
     Dates: start: 20050313, end: 20050314
  24. PIPERILLINE [Concomitant]
     Indication: INFECTION PROPHYLAXIS
     Dates: start: 20050313, end: 20050317
  25. BACTRIM [Concomitant]
     Indication: INFECTION PROPHYLAXIS
     Dates: start: 20050315, end: 20050714
  26. SUFENTA [Concomitant]
     Indication: SEDATION
     Dosage: OTHER INDICATION: VENTILATION
     Dates: start: 20050313, end: 20050314
  27. BURINEX [Concomitant]
     Dates: start: 20050313, end: 20050313
  28. DESAMETASONE [Concomitant]
     Indication: PROPHYLAXIS
     Dates: start: 20050314, end: 20050314
  29. SPASFON [Concomitant]
     Indication: ABDOMINAL PAIN
     Dosage: THERAPY STOPPED BETWEEN 28 MAR 2005 AND 6 APR 2005
     Dates: start: 20050314, end: 20050406
  30. VITAMIN K1 [Concomitant]
     Indication: PROPHYLAXIS
     Dates: start: 20050319, end: 20050319
  31. ACETAMINOPHEN [Concomitant]
     Indication: ABDOMINAL PAIN
     Dosage: THRAPY STOPPED BETWEEN 6 APR 2005 TO 15 JUL 2005 OTHER INDICATION: HEADACHE
     Dates: start: 20050322, end: 20050806
  32. SUCRALFATE [Concomitant]
     Indication: PROPHYLAXIS
     Dates: start: 20050403, end: 20050405
  33. IMODIUM [Concomitant]
     Indication: DIARRHOEA
     Dosage: THERAPY STOPPED BETWEEN 20 MAR 2005 AND 19 JUL 2005
     Dates: start: 20050319, end: 20050719
  34. DAFALGAN [Concomitant]
     Indication: ABDOMINAL PAIN
     Dates: start: 20050411, end: 20050411
  35. URSOLVAN [Concomitant]
     Dates: start: 20050406, end: 20050520

REACTIONS (3)
  - DIARRHOEA [None]
  - MICROLITHIASIS [None]
  - PYELONEPHRITIS [None]
